FAERS Safety Report 7968689-8 (Version None)
Quarter: 2011Q4

REPORT INFORMATION
  Report Type: 
  Country: None (occurrence: None)
  Receive Date: 20111207
  Receipt Date: 20111202
  Transmission Date: 20120403
  Serious: Yes (Hospitalization)
  Sender: FDA-Public Use
  Company Number: 1124116

PATIENT
  Age: 45 Year
  Sex: Female
  Weight: 88 kg

DRUGS (6)
  1. LEUCOVORIN CALCIUM [Suspect]
     Indication: PRODUCT USED FOR UNKNOWN INDICATION
     Dosage: 390 MG MILLIGRAM(S),
     Dates: start: 20110503, end: 20111005
  2. KYTRIL [Suspect]
     Indication: PRODUCT USED FOR UNKNOWN INDICATION
     Dosage: 2 MG MILLIGRAM(S)
     Dates: start: 20110503, end: 20111005
  3. DEXAMETHASONE [Suspect]
     Indication: PRODUCT USED FOR UNKNOWN INDICATION
     Dosage: 8 MG MILLIGRAM(S)
     Dates: start: 20110503, end: 20111005
  4. MAGNESIUM SULFATE [Suspect]
     Indication: PRODUCT USED FOR UNKNOWN INDICATION
     Dosage: 1 G GRAM(S),
     Dates: start: 20110503, end: 20111005
  5. CALCIUM GLUCONATE [Suspect]
     Indication: PRODUCT USED FOR UNKNOWN INDICATION
     Dosage: 1 G GRAM(S)
     Dates: start: 20110503, end: 20111005
  6. OXALIPLATIN [Suspect]
     Indication: PRODUCT USED FOR UNKNOWN INDICATION
     Dosage: 110 MG MILLIGRAM(S)
     Dates: start: 20110503, end: 20111005

REACTIONS (4)
  - VOMITING [None]
  - URTICARIA [None]
  - HYPERHIDROSIS [None]
  - HYPERTENSION [None]
